FAERS Safety Report 11470617 (Version 2)
Quarter: 2015Q3

REPORT INFORMATION
  Report Type: Spontaneous
  Country: NO (occurrence: NO)
  Receive Date: 20150908
  Receipt Date: 20150928
  Transmission Date: 20151125
  Serious: Yes (Disabling, Other)
  Sender: FDA-Public Use
  Company Number: NO-BAYER-2015-413126

PATIENT
  Age: 72 Year
  Sex: Male
  Weight: 68 kg

DRUGS (8)
  1. XOFIGO [Suspect]
     Active Substance: RADIUM RA-223 DICHLORIDE
     Indication: PROSTATE CANCER STAGE IV
     Dosage: 50 KBQ/KG BODY WEIGHT (1000KBQ/ML INJECTION LIQUID)
     Route: 042
     Dates: start: 20150513, end: 20150513
  2. XOFIGO [Suspect]
     Active Substance: RADIUM RA-223 DICHLORIDE
     Indication: PROSTATE CANCER STAGE IV
     Dosage: 50 KBQ/KG BODY WEIGHT (1000KBQ/ML INJECTION LIQUID)
     Route: 042
     Dates: start: 20150611, end: 20150611
  3. ZOMETA [Concomitant]
     Active Substance: ZOLEDRONIC ACID
     Dosage: UNK UNK, Q3MON
  4. XOFIGO [Suspect]
     Active Substance: RADIUM RA-223 DICHLORIDE
     Indication: PROSTATE CANCER STAGE IV
     Dosage: 50 KBQ/KG BODY WEIGHT (1000KBQ/ML INJECTION LIQUID)
     Route: 042
     Dates: start: 20150806, end: 20150806
  5. XOFIGO [Suspect]
     Active Substance: RADIUM RA-223 DICHLORIDE
     Indication: PROSTATE CANCER STAGE IV
     Dosage: 50 KBQ/KG BODY WEIGHT (1000KBQ/ML INJECTION LIQUID)
     Route: 042
     Dates: start: 20150416, end: 20150416
  6. XOFIGO [Suspect]
     Active Substance: RADIUM RA-223 DICHLORIDE
     Indication: PROSTATE CANCER STAGE IV
     Dosage: 50 KBQ/KG BODY WEIGHT (1000KBQ/ML INJECTION LIQUID)
     Route: 042
     Dates: start: 20150319, end: 20150319
  7. XOFIGO [Suspect]
     Active Substance: RADIUM RA-223 DICHLORIDE
     Indication: PROSTATE CANCER STAGE IV
     Dosage: 50 KBQ/KG BODY WEIGHT (1000KBQ/ML INJECTION LIQUID)
     Route: 042
     Dates: start: 20150709, end: 20150709
  8. ZOMETA [Concomitant]
     Active Substance: ZOLEDRONIC ACID
     Dosage: UNK UNK, Q1MON
     Dates: start: 2011, end: 201501

REACTIONS (3)
  - Osteonecrosis of jaw [Not Recovered/Not Resolved]
  - Pain in extremity [Recovered/Resolved]
  - Pain in jaw [Not Recovered/Not Resolved]

NARRATIVE: CASE EVENT DATE: 201503
